FAERS Safety Report 5400458-5 (Version None)
Quarter: 2007Q3

REPORT INFORMATION
  Report Type: 
  Country: None (occurrence: None)
  Receive Date: 20070730
  Receipt Date: 20070720
  Transmission Date: 20080115
  Serious: Yes (Life-Threatening, Hospitalization)
  Sender: FDA-Public Use
  Company Number: US-KINGPHARMUSA00001-K200700919

PATIENT

DRUGS (3)
  1. FLORINEF [Suspect]
     Indication: ADRENOGENITAL SYNDROME
     Dosage: .1 MG, QD
  2. FLORINEF [Suspect]
     Dosage: .8 MG, QD
  3. FLORINEF [Suspect]
     Dosage: .4 MG, QD

REACTIONS (3)
  - DRUG INEFFECTIVE [None]
  - HYPERKALAEMIA [None]
  - HYPERNATRAEMIA [None]
